FAERS Safety Report 6072477-X (Version None)
Quarter: 2009Q1

REPORT INFORMATION
  Report Type: 
  Country: None (occurrence: None)
  Receive Date: 20090210
  Receipt Date: 20090130
  Transmission Date: 20090719
  Serious: Yes (Hospitalization)
  Sender: FDA-Public Use
  Company Number: JP-ROCHE-603558

PATIENT
  Sex: Female

DRUGS (5)
  1. DIAZEPAM [Suspect]
     Indication: FACIAL SPASM
     Dosage: STRENGTH REPORTED AS: 5 MG
     Route: 048
     Dates: start: 20071025, end: 20080109
  2. DIAZEPAM [Suspect]
     Dosage: STRENGTH REPORTED AS: 2 MG
     Route: 048
     Dates: start: 20080110, end: 20080131
  3. TEGRETOL [Suspect]
     Indication: FACIAL SPASM
     Dosage: DOSAGE REGIMEN REPORTED AS: 200 MG, UID/QD
     Route: 048
     Dates: start: 20080110, end: 20080131
  4. MEILAX [Concomitant]
     Dosage: BEFORE BEDTIME.
     Route: 048
     Dates: start: 20070913
  5. MEILAX [Concomitant]
     Dosage: DOSE INCREASED. TAKEN AT BEDTIME
     Route: 048
     Dates: start: 20070927, end: 20071025

REACTIONS (1)
  - DRUG RASH WITH EOSINOPHILIA AND SYSTEMIC SYMPTOMS [None]
